FAERS Safety Report 9929635 (Version 2)
Quarter: 2014Q1

REPORT INFORMATION
  Report Type: Report from Study
  Country: US (occurrence: US)
  Receive Date: 20140227
  Receipt Date: 20140317
  Transmission Date: 20141002
  Serious: Yes (Other)
  Sender: FDA-Public Use
  Company Number: US-ABBVIE-14P-163-1203682-00

PATIENT
  Sex: Female
  Weight: 74.91 kg

DRUGS (5)
  1. HUMIRA [Suspect]
     Indication: ANKYLOSING SPONDYLITIS
     Dates: start: 20101209
  2. HUMIRA [Suspect]
     Dates: start: 20131220
  3. GENERIC AMLODIPINE/BENAZEPRIL [Concomitant]
     Indication: HYPERTENSION
     Dosage: 5/20MG DAILY
  4. IRON [Concomitant]
     Indication: PRODUCT USED FOR UNKNOWN INDICATION
  5. SPIRONOLACTONE [Concomitant]
     Indication: BLOOD POTASSIUM DECREASED

REACTIONS (4)
  - Rotator cuff syndrome [Not Recovered/Not Resolved]
  - Papillary thyroid cancer [Recovered/Resolved]
  - Drug dose omission [Unknown]
  - Lipoma [Unknown]
